FAERS Safety Report 19167327 (Version 1)
Quarter: 2021Q2

REPORT INFORMATION
  Report Type: Other
  Country: TR (occurrence: TR)
  Receive Date: 20210422
  Receipt Date: 20210422
  Transmission Date: 20210717
  Serious: Yes (Other)
  Sender: FDA-Public Use
  Company Number: TR-ROCHE-2812619

PATIENT
  Age: 25 Year
  Sex: Female

DRUGS (1)
  1. ATEZOLIZUMAB. [Suspect]
     Active Substance: ATEZOLIZUMAB
     Indication: METASTASES TO LUNG
     Route: 065
     Dates: start: 201705

REACTIONS (3)
  - Immune-mediated lung disease [Recovered/Resolved]
  - Pneumothorax [Recovered/Resolved]
  - Autoimmune hypothyroidism [Recovered/Resolved]
